FAERS Safety Report 15376441 (Version 1)
Quarter: 2018Q3

REPORT INFORMATION
  Report Type: Spontaneous
  Country: SE (occurrence: SE)
  Receive Date: 20180912
  Receipt Date: 20180912
  Transmission Date: 20181010
  Serious: Yes (Life-Threatening, Hospitalization)
  Sender: FDA-Public Use
  Company Number: SE-ALLERGAN-1844713US

PATIENT
  Age: 1 Day
  Sex: Male
  Weight: 4 kg

DRUGS (1)
  1. CITALOPRAM HYDROBROMIDE ? BP [Suspect]
     Active Substance: CITALOPRAM HYDROBROMIDE
     Indication: MATERNAL EXPOSURE TIMING UNSPECIFIED
     Dosage: 30 MG, QD
     Route: 064
     Dates: start: 201707, end: 201807

REACTIONS (4)
  - Oxygen saturation decreased [Unknown]
  - Foetal exposure during pregnancy [Unknown]
  - Hypotonia [Unknown]
  - Pulmonary hypertension [Unknown]
